FAERS Safety Report 17120608 (Version 2)
Quarter: 2020Q1

REPORT INFORMATION
  Report Type: Spontaneous
  Country: CN (occurrence: CN)
  Receive Date: 20191206
  Receipt Date: 20200116
  Transmission Date: 20200409
  Serious: Yes (Other)
  Sender: FDA-Public Use
  Company Number: CN-MACLEODS PHARMACEUTICALS US LTD-MAC2018024052

PATIENT

DRUGS (2)
  1. ZIPRASIDONE 40 MG [Suspect]
     Active Substance: ZIPRASIDONE
     Indication: MAJOR DEPRESSION
     Dosage: 40 MILLIGRAM, QD, AT BEDTIME
     Route: 065
  2. DULOXETINE 60 MG [Suspect]
     Active Substance: DULOXETINE
     Indication: MAJOR DEPRESSION
     Dosage: 60 MILLIGRAM, QD, AT BEDTIME
     Route: 065

REACTIONS (4)
  - Coma [Recovered/Resolved]
  - Seizure [Recovered/Resolved]
  - Polyuria [Recovered/Resolved]
  - Hyponatraemia [Recovered/Resolved]
